FAERS Safety Report 6027102-0 (Version None)
Quarter: 2009Q1

REPORT INFORMATION
  Report Type: 
  Country: None (occurrence: None)
  Receive Date: 20090102
  Receipt Date: 20090102
  Transmission Date: 20090719
  Serious: No
  Sender: FDA-Public Use
  Company Number: None

PATIENT
  Age: 22 Year
  Sex: Male
  Weight: 80 kg

DRUGS (2)
  1. AROPAX 20MG GSK [Suspect]
     Indication: DEPRESSION
     Dosage: 20MG 1 20MG  TAB PER DAY PO
     Route: 048
     Dates: start: 20070129, end: 20071015
  2. AROPAX 20MG GSK [Suspect]
     Indication: DEPRESSION
     Dosage: 20MG 1 20MG  TAB PER DAY PO
     Route: 048
     Dates: start: 20080201, end: 20080827

REACTIONS (12)
  - ANGER [None]
  - BLUNTED AFFECT [None]
  - DEPRESSION [None]
  - DEREALISATION [None]
  - DRUG WITHDRAWAL SYNDROME [None]
  - EMOTIONAL DISORDER [None]
  - FEELING ABNORMAL [None]
  - LOSS OF EMPLOYMENT [None]
  - MEMORY IMPAIRMENT [None]
  - NERVOUS SYSTEM DISORDER [None]
  - PAIN [None]
  - SOCIAL PROBLEM [None]
